FAERS Safety Report 8272030-3 (Version None)
Quarter: 2012Q1

REPORT INFORMATION
  Report Type: 
  Country: None (occurrence: None)
  Receive Date: 20120312
  Receipt Date: 20111213
  Transmission Date: 20120608
  Serious: No
  Sender: FDA-Public Use
  Company Number: 2011SP058470

PATIENT
  Age: 21 Year
  Sex: Male

DRUGS (1)
  1. SAPHRIS [Suspect]
     Indication: MAJOR DEPRESSION
     Dosage: ;BID;SL; QD; SL
     Route: 060

REACTIONS (2)
  - SEDATION [None]
  - INAPPROPRIATE SCHEDULE OF DRUG ADMINISTRATION [None]
